FAERS Safety Report 10783577 (Version 3)
Quarter: 2015Q1

REPORT INFORMATION
  Report Type: Report from Study
  Country: HU (occurrence: HU)
  Receive Date: 20150210
  Receipt Date: 20150223
  Transmission Date: 20150721
  Serious: Yes (Hospitalization, Other)
  Sender: FDA-Public Use
  Company Number: HU-GILEAD-2015-0135489

PATIENT
  Age: 57 Year
  Sex: Male
  Weight: 58.9 kg

DRUGS (16)
  1. RITUXIMAB [Suspect]
     Active Substance: RITUXIMAB
     Indication: CHRONIC LYMPHOCYTIC LEUKAEMIA
     Dosage: 640 MG, CYCLICAL
     Route: 042
     Dates: start: 20141229
  2. SUMETROLIM [Concomitant]
     Dosage: UNK
     Route: 048
     Dates: start: 20141230, end: 20150115
  3. SUPRASTIN [Concomitant]
     Active Substance: CHLOROPYRAMINE HYDROCHLORIDE
     Indication: PREMEDICATION
     Route: 030
     Dates: start: 20141229
  4. SOLU-MEDROL [Concomitant]
     Active Substance: METHYLPREDNISOLONE SODIUM SUCCINATE
     Indication: PREMEDICATION
     Route: 042
     Dates: start: 20141229
  5. CIPROBAY                           /00697201/ [Concomitant]
     Indication: PROPHYLAXIS
     Route: 048
     Dates: start: 20150115, end: 20150119
  6. TELVIRAN [Concomitant]
     Indication: ANTIVIRAL PROPHYLAXIS
     Route: 048
     Dates: start: 20141230
  7. IDELALISIB [Suspect]
     Active Substance: IDELALISIB
     Indication: CHRONIC LYMPHOCYTIC LEUKAEMIA
     Dosage: 150 MG, BID
     Route: 048
     Dates: start: 20141229
  8. ZYRTEC [Concomitant]
     Active Substance: CETIRIZINE HYDROCHLORIDE
     Indication: RASH MACULO-PAPULAR
     Route: 048
     Dates: start: 20150115, end: 20150122
  9. RITUXIMAB [Suspect]
     Active Substance: RITUXIMAB
     Dosage: 840 MG CYCLICAL
     Dates: start: 20150126
  10. MILURIT [Concomitant]
     Active Substance: ALLOPURINOL
     Indication: PROPHYLAXIS
     Route: 048
     Dates: start: 20141230, end: 20150115
  11. PARACETAMOL [Concomitant]
     Active Substance: ACETAMINOPHEN
     Indication: PREMEDICATION
     Route: 048
     Dates: start: 20141229
  12. ELOCOM [Concomitant]
     Active Substance: MOMETASONE FUROATE
     Indication: RASH MACULO-PAPULAR
     Route: 061
     Dates: start: 20150115, end: 20150122
  13. IDELALISIB [Suspect]
     Active Substance: IDELALISIB
     Dosage: 100 MG, BID
     Route: 048
  14. BENDAMUSTINE [Suspect]
     Active Substance: BENDAMUSTINE
     Indication: CHRONIC LYMPHOCYTIC LEUKAEMIA
     Dosage: 153 MG, CYCLICAL
     Route: 042
     Dates: start: 20141229
  15. MEDROL [Concomitant]
     Active Substance: METHYLPREDNISOLONE
     Indication: RASH MACULO-PAPULAR
     Route: 048
     Dates: start: 20150115, end: 20150122
  16. SUMETROLIM [Concomitant]
     Indication: ANTIFUNGAL PROPHYLAXIS
     Dosage: UNK
     Route: 048
     Dates: start: 20150119

REACTIONS (2)
  - Anaemia [Recovered/Resolved]
  - Pneumonia [Recovered/Resolved]

NARRATIVE: CASE EVENT DATE: 20150202
